FAERS Safety Report 18295191 (Version 5)
Quarter: 2021Q4

REPORT INFORMATION
  Report Type: Spontaneous
  Country: US (occurrence: US)
  Receive Date: 20200922
  Receipt Date: 20211214
  Transmission Date: 20220303
  Serious: No
  Sender: FDA-Public Use
  Company Number: US-GLOBAL BLOOD THERAPEUTICS INC-US-GBT-20-02367

PATIENT
  Age: 49 Year
  Sex: Female

DRUGS (16)
  1. OXBRYTA [Suspect]
     Active Substance: VOXELOTOR
     Indication: Sickle cell disease
     Route: 048
     Dates: start: 20200529, end: 20210531
  2. OXBRYTA [Suspect]
     Active Substance: VOXELOTOR
     Route: 048
     Dates: start: 20200715, end: 20200729
  3. OXBRYTA [Suspect]
     Active Substance: VOXELOTOR
     Route: 048
     Dates: start: 20200730, end: 2020
  4. OXBRYTA [Suspect]
     Active Substance: VOXELOTOR
     Dosage: ONE TABLET IN THE MORNING, AND ONE TABLET IN THE EVENING
     Route: 048
     Dates: start: 2020, end: 202009
  5. OXBRYTA [Suspect]
     Active Substance: VOXELOTOR
     Route: 048
     Dates: start: 20201230, end: 20210210
  6. OXBRYTA [Suspect]
     Active Substance: VOXELOTOR
     Route: 048
     Dates: start: 20210224, end: 20210311
  7. APAP [Concomitant]
     Active Substance: ACETAMINOPHEN
     Indication: Product used for unknown indication
     Dosage: AS REQUIRED
     Route: 048
  8. FERROUS SULFATE [Concomitant]
     Active Substance: FERROUS SULFATE
     Indication: Sickle cell disease
     Route: 048
     Dates: start: 20201015
  9. FOLIC ACID [Concomitant]
     Active Substance: FOLIC ACID
     Indication: Sickle cell disease
     Route: 048
     Dates: start: 20101109
  10. FUROSEMIDE [Concomitant]
     Active Substance: FUROSEMIDE
     Indication: Sickle cell disease
     Route: 048
     Dates: start: 20191203
  11. METOPROLOL [Concomitant]
     Active Substance: METOPROLOL
     Indication: Product used for unknown indication
     Route: 048
     Dates: start: 20171018
  12. SODIUM BICARBONATE [Concomitant]
     Active Substance: SODIUM BICARBONATE
     Indication: Product used for unknown indication
     Route: 048
     Dates: start: 20160909
  13. SPS [Concomitant]
     Active Substance: SODIUM POLYSTYRENE SULFONATE
     Indication: Product used for unknown indication
     Dosage: AT BEDTIME
     Route: 048
     Dates: start: 20170120
  14. CHOLECALCIFEROL [Concomitant]
     Active Substance: CHOLECALCIFEROL
     Indication: Sickle cell disease
     Route: 048
     Dates: start: 20160511
  15. ACETAMINOPHEN-CODINE [Concomitant]
     Indication: Sickle cell disease
     Dosage: 300-30 MG
     Route: 048
     Dates: start: 20140930
  16. UNSPECIFIED INGREDIENT [Concomitant]
     Active Substance: UNSPECIFIED INGREDIENT
     Indication: Sickle cell disease
     Dosage: PACKED RED BLOOD CELLS
     Dates: start: 20210315, end: 20210315

REACTIONS (7)
  - Liver disorder [Unknown]
  - Diarrhoea [Recovered/Resolved]
  - Abdominal discomfort [Recovered/Resolved]
  - Rash [Recovered/Resolved]
  - Off label use [Unknown]
  - Therapy interrupted [Unknown]
  - Insurance issue [Unknown]

NARRATIVE: CASE EVENT DATE: 20200529
